FAERS Safety Report 12257433 (Version 1)
Quarter: 2016Q2

REPORT INFORMATION
  Report Type: Spontaneous
  Country: JP (occurrence: JP)
  Receive Date: 20160412
  Receipt Date: 20160412
  Transmission Date: 20160815
  Serious: Yes (Hospitalization)
  Sender: FDA-Public Use
  Company Number: JP-ALLERGAN-1648364

PATIENT
  Age: 76 Year
  Sex: Female
  Weight: 36 kg

DRUGS (9)
  1. REMERON [Concomitant]
     Active Substance: MIRTAZAPINE
     Indication: PRODUCT USED FOR UNKNOWN INDICATION
     Dosage: UNK, QD
     Route: 048
     Dates: start: 20150422, end: 20151216
  2. REMERON [Concomitant]
     Active Substance: MIRTAZAPINE
     Dosage: UNK, QD
     Route: 048
     Dates: start: 20151218
  3. TERNELIN [Concomitant]
     Active Substance: TIZANIDINE
     Indication: MUSCULOSKELETAL STIFFNESS
     Dosage: 1 MG, QD
     Route: 048
     Dates: start: 20100127, end: 20151216
  4. NEODOPASTON [Concomitant]
     Active Substance: CARBIDOPA\LEVODOPA
     Indication: PARKINSON^S DISEASE
     Dosage: UNK, FOUR TIMES A DAY
     Route: 048
     Dates: start: 2009
  5. REQUIP [Concomitant]
     Active Substance: ROPINIROLE HYDROCHLORIDE
     Indication: PARKINSON^S DISEASE
     Dosage: UNK
     Dates: end: 2009
  6. URSO [Suspect]
     Active Substance: URSODIOL
     Indication: HEPATIC FUNCTION ABNORMAL
     Dosage: UNK
     Route: 048
     Dates: start: 20151202, end: 20151216
  7. RIVOTRIL [Concomitant]
     Active Substance: CLONAZEPAM
     Indication: TREMOR
     Dosage: 0.5 MG, QD
     Route: 048
     Dates: start: 20150616, end: 20151216
  8. GASTER [Concomitant]
     Active Substance: FAMOTIDINE
     Indication: PRODUCT USED FOR UNKNOWN INDICATION
     Dosage: UNK
     Route: 048
  9. EXCEGRAN [Concomitant]
     Active Substance: ZONISAMIDE
     Indication: SEIZURE
     Dosage: 125 MG, QD
     Route: 048
     Dates: start: 20100616, end: 20151216

REACTIONS (4)
  - Malaise [Unknown]
  - Interstitial lung disease [Recovered/Resolved]
  - Dehydration [None]
  - Altered state of consciousness [None]

NARRATIVE: CASE EVENT DATE: 20151202
